FAERS Safety Report 8905139 (Version 1)
Quarter: 2012Q4

REPORT INFORMATION
  Report Type: Report from Study
  Country: SE (occurrence: SE)
  Receive Date: 20121112
  Receipt Date: 20121112
  Transmission Date: 20130627
  Serious: Yes (Hospitalization)
  Sender: FDA-Public Use
  Company Number: PHHO2012SE016114

PATIENT
  Sex: Male
  Weight: 65 kg

DRUGS (1)
  1. EVEROLIMUS [Suspect]
     Indication: HEART TRANSPLANT
     Dosage: UNK
     Dates: start: 20071207, end: 20120903

REACTIONS (1)
  - Pulmonary arterial hypertension [Recovering/Resolving]
